FAERS Safety Report 5663436-7 (Version None)
Quarter: 2008Q1

REPORT INFORMATION
  Report Type: 
  Country: None (occurrence: None)
  Receive Date: 20080310
  Receipt Date: 20080229
  Transmission Date: 20080703
  Serious: Yes (Hospitalization)
  Sender: FDA-Public Use
  Company Number: 2008SP004269

PATIENT
  Age: 18 Year
  Sex: Female
  Weight: 42 kg

DRUGS (1)
  1. PEG-INTRON [Suspect]
     Indication: HEPATITIS B
     Dosage: 50 MCG; QW; SC
     Route: 058
     Dates: start: 20080215, end: 20080222

REACTIONS (1)
  - HEPATITIS [None]
